FAERS Safety Report 12224809 (Version 1)
Quarter: 2016Q1

REPORT INFORMATION
  Report Type: Spontaneous
  Country: US (occurrence: US)
  Receive Date: 20160331
  Receipt Date: 20160331
  Transmission Date: 20160526
  Serious: No
  Sender: FDA-Public Use
  Company Number: US-009507513-1603USA013364

PATIENT
  Sex: Female

DRUGS (2)
  1. BELSOMRA [Suspect]
     Active Substance: SUVOREXANT
     Dosage: 10MG
  2. BELSOMRA [Suspect]
     Active Substance: SUVOREXANT
     Dosage: 5MG

REACTIONS (2)
  - Hypervigilance [Unknown]
  - Energy increased [Unknown]
